FAERS Safety Report 4684201-3 (Version None)
Quarter: 2005Q2

REPORT INFORMATION
  Report Type: 
  Country: None (occurrence: None)
  Receive Date: 20050607
  Receipt Date: 20050602
  Transmission Date: 20051028
  Serious: Yes (Hospitalization)
  Sender: FDA-Public Use
  Company Number: FR-GLAXOSMITHKLINE-B0383450A

PATIENT
  Age: 34 Year
  Sex: Female
  Weight: 69 kg

DRUGS (3)
  1. EPIVIR [Suspect]
     Indication: HIV INFECTION
     Dosage: 300MG PER DAY
     Route: 048
     Dates: start: 20030121, end: 20050201
  2. SUSTIVA [Suspect]
     Indication: HIV INFECTION
     Dosage: 600MG PER DAY
     Route: 048
     Dates: start: 20030121, end: 20050201
  3. VIREAD [Suspect]
     Indication: HIV INFECTION
     Dosage: 245MG PER DAY
     Route: 048
     Dates: start: 20050121, end: 20050201

REACTIONS (1)
  - DELIRIUM [None]
